FAERS Safety Report 24260850 (Version 2)
Quarter: 2024Q3

REPORT INFORMATION
  Report Type: Spontaneous
  Country: US (occurrence: US)
  Receive Date: 20240828
  Receipt Date: 20240830
  Transmission Date: 20241017
  Serious: Yes (Other)
  Sender: JOHNSON AND JOHNSON
  Company Number: US-JNJFOC-20240848907

PATIENT
  Sex: Male

DRUGS (4)
  1. INVEGA [Suspect]
     Active Substance: PALIPERIDONE
     Indication: Bipolar disorder
     Route: 048
     Dates: start: 202303
  2. INVEGA SUSTENNA [Suspect]
     Active Substance: PALIPERIDONE PALMITATE
     Indication: Bipolar disorder
     Route: 030
  3. INVEGA SUSTENNA [Suspect]
     Active Substance: PALIPERIDONE PALMITATE
  4. INVEGA SUSTENNA [Suspect]
     Active Substance: PALIPERIDONE PALMITATE

REACTIONS (19)
  - Drug abuse [Unknown]
  - Loss of consciousness [Unknown]
  - Mental impairment [Unknown]
  - Weight increased [Unknown]
  - Alcohol use [Unknown]
  - Caffeine consumption [Unknown]
  - Nicotine dependence [Unknown]
  - Feeling abnormal [Unknown]
  - Apathy [Unknown]
  - Dizziness [Unknown]
  - Depressed mood [Unknown]
  - Loss of libido [Unknown]
  - Decreased appetite [Unknown]
  - Tremor [Unknown]
  - Vision blurred [Unknown]
  - Anxiety [Unknown]
  - Sensory disturbance [Unknown]
  - Loss of personal independence in daily activities [Unknown]
  - Off label use [Unknown]
